FAERS Safety Report 17179797 (Version 2)
Quarter: 2019Q4

REPORT INFORMATION
  Report Type: Report from Study
  Country: IT (occurrence: IT)
  Receive Date: 20191219
  Receipt Date: 20191230
  Transmission Date: 20200122
  Serious: Yes (Death, Congenital Anomaly, Other)
  Sender: FDA-Public Use
  Company Number: IT-VIIV HEALTHCARE LIMITED-IT2019GSK223365

PATIENT

DRUGS (2)
  1. ZIDOVUDINE. [Suspect]
     Active Substance: ZIDOVUDINE
     Indication: HIV INFECTION
     Dosage: UNK
     Route: 064
  2. LAMIVUDINE AND ZIDOVUDINE [Suspect]
     Active Substance: LAMIVUDINE\ZIDOVUDINE
     Indication: HIV INFECTION
     Dosage: UNK

REACTIONS (11)
  - Optic nerve hypoplasia [Unknown]
  - Premature baby [Unknown]
  - Left ventricular hypertrophy [Unknown]
  - Respiratory syncytial virus infection [Unknown]
  - Mitral valve prolapse [Unknown]
  - Respiratory failure [Fatal]
  - Polydactyly [Unknown]
  - Foetal exposure during pregnancy [Unknown]
  - Trisomy 13 [Unknown]
  - Deafness congenital [Unknown]
  - Congenital central nervous system anomaly [Unknown]
